FAERS Safety Report 8139537-0 (Version None)
Quarter: 2012Q1

REPORT INFORMATION
  Report Type: 
  Country: None (occurrence: None)
  Receive Date: 20120215
  Receipt Date: 20120210
  Transmission Date: 20120608
  Serious: Yes (Life-Threatening, Hospitalization)
  Sender: FDA-Public Use
  Company Number: GB-PFIZER INC-2011236002

PATIENT
  Age: 15 Year
  Sex: Male
  Weight: 51.45 kg

DRUGS (12)
  1. URSODEOXYCHOLIC ACID [Concomitant]
  2. VITAMIN E [Concomitant]
  3. SODIUM CHLORIDE [Concomitant]
     Dosage: 7 %, UNK
  4. TEICOPLANIN [Concomitant]
  5. VITAMIN B NOS [Concomitant]
  6. NOVORAPID [Concomitant]
  7. DORNASE ALFA [Concomitant]
  8. OMEPRAZOLE [Concomitant]
  9. INSULIN DETEMIR [Concomitant]
  10. FLUTICASONE [Concomitant]
  11. VITAMIN K TAB [Concomitant]
  12. PIPERACILLIN AND TAZOBACTAM [Suspect]
     Indication: SEPSIS
     Dosage: 4.5 G, UNK
     Route: 042
     Dates: start: 20110911

REACTIONS (5)
  - RASH ERYTHEMATOUS [None]
  - SWELLING FACE [None]
  - PRURITUS [None]
  - VISION BLURRED [None]
  - PARAESTHESIA [None]
